FAERS Safety Report 25865731 (Version 1)
Quarter: 2025Q3

REPORT INFORMATION
  Report Type: Report from Study
  Country: US (occurrence: US)
  Receive Date: 20250930
  Receipt Date: 20250930
  Transmission Date: 20251020
  Serious: Yes (Other)
  Sender: TAIHO ONCOLOGY INC
  Company Number: US-TAIHOP-2025-010453

PATIENT
  Age: 70 Year
  Sex: Male

DRUGS (1)
  1. LONSURF [Suspect]
     Active Substance: TIPIRACIL HYDROCHLORIDE\TRIFLURIDINE
     Indication: Gastric cancer
     Dosage: CYCLE 2
     Route: 048

REACTIONS (3)
  - Dehydration [Unknown]
  - Nausea [Unknown]
  - Decreased appetite [Unknown]
